FAERS Safety Report 14073180 (Version 1)
Quarter: 2017Q4

REPORT INFORMATION
  Report Type: Spontaneous
  Country: US (occurrence: US)
  Receive Date: 20171011
  Receipt Date: 20171011
  Transmission Date: 20180321
  Serious: No
  Sender: FDA-Public Use
  Company Number: US-ELI_LILLY_AND_COMPANY-US201710003347

PATIENT
  Sex: Female

DRUGS (7)
  1. VICTOZA [Concomitant]
     Active Substance: LIRAGLUTIDE
     Indication: PRODUCT USED FOR UNKNOWN INDICATION
  2. HUMULIN R U-500 [Suspect]
     Active Substance: INSULIN HUMAN
     Dosage: 60 U, DAILY, BEFORE LUNCH
  3. HUMULIN R U-500 [Suspect]
     Active Substance: INSULIN HUMAN
     Dosage: 60 U, DAILY, BEFORE DINNER
     Route: 065
  4. HUMULIN R U-500 [Suspect]
     Active Substance: INSULIN HUMAN
     Dosage: 60 U, DAILY, BEFORE DINNER
     Route: 065
  5. HUMULIN R U-500 [Suspect]
     Active Substance: INSULIN HUMAN
     Indication: PRODUCT USED FOR UNKNOWN INDICATION
     Dosage: 80 U, EACH MORNING
     Route: 065
     Dates: start: 201610
  6. HUMULIN R U-500 [Suspect]
     Active Substance: INSULIN HUMAN
     Dosage: 60 U, DAILY, BEFORE LUNCH
  7. HUMULIN R U-500 [Suspect]
     Active Substance: INSULIN HUMAN
     Dosage: 80 U, EACH MORNING
     Route: 065

REACTIONS (1)
  - Incorrect dose administered [Unknown]
